FAERS Safety Report 8244375-4 (Version None)
Quarter: 2012Q1

REPORT INFORMATION
  Report Type: 
  Country: None (occurrence: None)
  Receive Date: 20120329
  Receipt Date: 20120322
  Transmission Date: 20120608
  Serious: Yes (Hospitalization, Other)
  Sender: FDA-Public Use
  Company Number: EC-JNJFOC-20120305947

PATIENT
  Sex: Male

DRUGS (2)
  1. LISTERINE COOLMINT [Suspect]
     Indication: PRODUCT USED FOR UNKNOWN INDICATION
     Route: 048
     Dates: end: 20120305
  2. BRONCOTOSIL [Concomitant]
     Indication: RESPIRATORY DISORDER
     Route: 065

REACTIONS (3)
  - PHARYNGITIS [None]
  - GLOSSITIS [None]
  - TONGUE HAEMORRHAGE [None]
